FAERS Safety Report 11618284 (Version 3)
Quarter: 2015Q4

REPORT INFORMATION
  Report Type: Report from Study
  Country: US (occurrence: US)
  Receive Date: 20151011
  Receipt Date: 20151120
  Transmission Date: 20160304
  Serious: Yes (Other)
  Sender: FDA-Public Use
  Company Number: US-AMGEN-USASP2015104784

PATIENT
  Age: 54 Year
  Sex: Female

DRUGS (3)
  1. TYLENOL [Concomitant]
     Active Substance: ACETAMINOPHEN
     Dosage: UNK
  2. ENBREL [Suspect]
     Active Substance: ETANERCEPT
     Dosage: UNK UNK, UNK
     Route: 065
  3. ENBREL [Suspect]
     Active Substance: ETANERCEPT
     Indication: PSORIASIS
     Dosage: 50 MG WEEKLY
     Route: 058
     Dates: start: 20150730

REACTIONS (16)
  - Injection site reaction [Unknown]
  - Injection site pruritus [Unknown]
  - Pain in extremity [Unknown]
  - Secretion discharge [Unknown]
  - Infected cyst [Unknown]
  - Burning sensation [Unknown]
  - Psoriasis [Not Recovered/Not Resolved]
  - Cyst [Unknown]
  - Swelling [Unknown]
  - Stress [Unknown]
  - Peripheral swelling [Unknown]
  - Sunburn [Unknown]
  - Injection site urticaria [Unknown]
  - Nasopharyngitis [Unknown]
  - Nervousness [Unknown]
  - Pain [Unknown]

NARRATIVE: CASE EVENT DATE: 2015
